FAERS Safety Report 4503053-5 (Version None)
Quarter: 2004Q4

REPORT INFORMATION
  Report Type: 
  Country: None (occurrence: None)
  Receive Date: 20041116
  Receipt Date: 20041116
  Transmission Date: 20050328
  Serious: Yes (Death)
  Sender: FDA-Public Use
  Company Number: None

PATIENT
  Age: 46 Year
  Sex: Male
  Weight: 140 kg

DRUGS (8)
  1. LOVENOX [Suspect]
     Indication: ATRIAL FIBRILLATION
     Dosage: 80MG Q12H SUBCUTANEO
     Route: 058
     Dates: start: 20040815, end: 20040815
  2. LOVENOX [Suspect]
     Indication: PROPHYLAXIS
     Dosage: 80MG Q12H SUBCUTANEO
     Route: 058
     Dates: start: 20040815, end: 20040815
  3. WARFARIN SODIUM [Suspect]
     Indication: ATRIAL FIBRILLATION
     Dosage: 5MG DAILY INTRAVENOU
     Route: 042
     Dates: start: 20040819, end: 20040821
  4. WARFARIN SODIUM [Suspect]
     Indication: PROPHYLAXIS
     Dosage: 5MG DAILY INTRAVENOU
     Route: 042
     Dates: start: 20040819, end: 20040821
  5. VANCOMYCIN [Concomitant]
  6. ZOSYN [Concomitant]
  7. RITALIN [Concomitant]
  8. FLUCONAZOLE [Concomitant]

REACTIONS (4)
  - CEREBRAL HAEMORRHAGE [None]
  - HAEMODIALYSIS [None]
  - HAEMORRHAGE [None]
  - PROCEDURAL SITE REACTION [None]
